FAERS Safety Report 9740732 (Version 1)
Quarter: 2013Q4

REPORT INFORMATION
  Report Type: Spontaneous
  Country: US (occurrence: US)
  Receive Date: 20131209
  Receipt Date: 20131209
  Transmission Date: 20140711
  Serious: No
  Sender: FDA-Public Use
  Company Number: US-BIOGENIDEC-2013BI100754

PATIENT
  Age: 54 Year
  Sex: Female
  Weight: 68 kg

DRUGS (5)
  1. TECFIDERA [Suspect]
     Indication: MULTIPLE SCLEROSIS
     Route: 048
  2. TECFIDERA [Suspect]
     Indication: MULTIPLE SCLEROSIS
     Route: 048
  3. CRESTOR [Concomitant]
  4. VIT D3 [Concomitant]
  5. CELEXA [Concomitant]

REACTIONS (3)
  - Dry throat [Unknown]
  - Nasopharyngitis [Unknown]
  - Throat irritation [Unknown]
